FAERS Safety Report 24885574 (Version 2)
Quarter: 2025Q1

REPORT INFORMATION
  Report Type: Spontaneous
  Country: US (occurrence: US)
  Receive Date: 20250125
  Receipt Date: 20250129
  Transmission Date: 20250409
  Serious: Yes (Hospitalization, Other)
  Sender: GLAND PHARMA LTD
  Company Number: US-GLANDPHARMA-US-2025GLNSPO00113

PATIENT
  Age: 64 Year
  Sex: Male

DRUGS (2)
  1. OXALIPLATIN [Suspect]
     Active Substance: OXALIPLATIN
     Indication: Neoplasm malignant
     Route: 065
  2. OXALIPLATIN [Suspect]
     Active Substance: OXALIPLATIN
     Route: 065

REACTIONS (8)
  - Cerebrovascular accident [Unknown]
  - Muscle spasms [Unknown]
  - Hypertension [Unknown]
  - Vision blurred [Unknown]
  - Dysarthria [Unknown]
  - Swollen tongue [Unknown]
  - Muscular weakness [Unknown]
  - Hypoaesthesia [Unknown]
